FAERS Safety Report 6169398-0 (Version None)
Quarter: 2009Q2

REPORT INFORMATION
  Report Type: 
  Country: None (occurrence: None)
  Receive Date: 20090424
  Receipt Date: 20090409
  Transmission Date: 20091009
  Serious: Yes (Hospitalization)
  Sender: FDA-Public Use
  Company Number: 2009S1006676

PATIENT
  Age: 59 Year
  Sex: Male

DRUGS (7)
  1. BISOPROLOL FUMARATE [Suspect]
     Indication: HYPERTENSION
     Dosage: 5 MG;TWICE A DAY; ORAL
     Route: 048
     Dates: start: 20050101, end: 20090207
  2. TEGRETOL [Suspect]
     Indication: PARTIAL SEIZURES
     Dosage: ORAL
     Route: 048
     Dates: start: 20050101
  3. KEPPRA [Suspect]
     Indication: PARTIAL SEIZURES
     Dosage: 750 MG; TWICE  A DAY; ORAL
     Route: 048
     Dates: start: 20090201
  4. NULYTELY [Concomitant]
  5. TICLOPIDINE HCL [Concomitant]
  6. ENALAPRIL [Concomitant]
  7. HYDROCHLOROTHIAZIDE [Concomitant]

REACTIONS (2)
  - SINUS BRADYCARDIA [None]
  - SOMNOLENCE [None]
